FAERS Safety Report 7556949-4 (Version None)
Quarter: 2011Q2

REPORT INFORMATION
  Report Type: 
  Country: None (occurrence: None)
  Receive Date: 20110615
  Receipt Date: 20110615
  Transmission Date: 20111010
  Serious: Yes (Hospitalization)
  Sender: FDA-Public Use
  Company Number: None

PATIENT
  Age: 53 Year
  Sex: Male
  Weight: 88 kg

DRUGS (5)
  1. METOPROLOL SUCCINATE EXTENDED RELEASE [Concomitant]
  2. AMOXICILLIN [Suspect]
     Indication: TOOTHACHE
     Dosage: PO
     Route: 048
  3. HYDROCODONE BITARTRATE AND ACETAMINOPHEN [Suspect]
     Indication: TOOTHACHE
     Dosage: PRN PO
     Route: 048
  4. ALPRAZOLAM [Concomitant]
  5. FENOFIBRATE [Concomitant]

REACTIONS (1)
  - ANAPHYLACTIC REACTION [None]
